FAERS Safety Report 20482681 (Version 2)
Quarter: 2023Q4

REPORT INFORMATION
  Report Type: Report from Study
  Country: DE (occurrence: DE)
  Receive Date: 20220217
  Receipt Date: 20231226
  Transmission Date: 20240110
  Serious: No
  Sender: FDA-Public Use
  Company Number: DE-AMGEN-DEUNI2022027857

PATIENT
  Age: 66 Year
  Sex: Male
  Weight: 108 kg

DRUGS (59)
  1. PANITUMUMAB [Suspect]
     Active Substance: PANITUMUMAB
     Indication: Colorectal cancer metastatic
     Dosage: 648 MILLIGRAM
     Route: 042
     Dates: start: 20201202
  2. PANITUMUMAB [Suspect]
     Active Substance: PANITUMUMAB
     Dosage: 660 MILLIGRAM
     Route: 042
     Dates: start: 20210119
  3. PANITUMUMAB [Suspect]
     Active Substance: PANITUMUMAB
     Dosage: 672 MILLIGRAM
     Route: 042
     Dates: start: 20210512
  4. PANITUMUMAB [Suspect]
     Active Substance: PANITUMUMAB
     Dosage: 666 MILLIGRAM
     Route: 042
     Dates: start: 20210526
  5. PANITUMUMAB [Suspect]
     Active Substance: PANITUMUMAB
     Dosage: 530 MILLIGRAM
     Route: 042
     Dates: start: 20210728
  6. PANITUMUMAB [Suspect]
     Active Substance: PANITUMUMAB
     Dosage: 528 MILLIGRAM
     Route: 042
     Dates: start: 20210811
  7. PANITUMUMAB [Suspect]
     Active Substance: PANITUMUMAB
     Dosage: 530 MILLIGRAM
     Route: 042
     Dates: start: 20211006
  8. PANITUMUMAB [Suspect]
     Active Substance: PANITUMUMAB
     Dosage: 540 MILLIGRAM
     Route: 042
     Dates: start: 20211103
  9. PANITUMUMAB [Suspect]
     Active Substance: PANITUMUMAB
     Dosage: 530 MILLIGRAM
     Route: 042
     Dates: start: 20211130
  10. LEUCOVORIN [Suspect]
     Active Substance: LEUCOVORIN\LEUCOVORIN CALCIUM
     Indication: Colorectal cancer metastatic
     Dosage: 892 MILLIGRAM
     Route: 065
     Dates: start: 20201202
  11. LEUCOVORIN [Suspect]
     Active Substance: LEUCOVORIN\LEUCOVORIN CALCIUM
     Dosage: 900 MILLIGRAM
     Route: 065
     Dates: start: 20210119
  12. LEUCOVORIN [Suspect]
     Active Substance: LEUCOVORIN\LEUCOVORIN CALCIUM
     Dosage: 720 MILLIGRAM
     Route: 065
     Dates: start: 20210202
  13. LEUCOVORIN [Suspect]
     Active Substance: LEUCOVORIN\LEUCOVORIN CALCIUM
     Dosage: 750 MILLIGRAM
     Route: 065
     Dates: start: 20210512
  14. LEUCOVORIN [Suspect]
     Active Substance: LEUCOVORIN\LEUCOVORIN CALCIUM
     Dosage: 725 MILLIGRAM
     Route: 065
     Dates: start: 20210526
  15. LEUCOVORIN [Suspect]
     Active Substance: LEUCOVORIN\LEUCOVORIN CALCIUM
     Dosage: 717 MILLIGRAM
     Route: 065
     Dates: start: 20210623
  16. LEUCOVORIN [Suspect]
     Active Substance: LEUCOVORIN\LEUCOVORIN CALCIUM
     Dosage: 713 MILLIGRAM
     Route: 065
     Dates: start: 20210707
  17. LEUCOVORIN [Suspect]
     Active Substance: LEUCOVORIN\LEUCOVORIN CALCIUM
     Dosage: 720 MILLIGRAM
     Route: 065
     Dates: start: 20210728
  18. LEUCOVORIN [Suspect]
     Active Substance: LEUCOVORIN\LEUCOVORIN CALCIUM
     Dosage: 730 MILLIGRAM
     Route: 065
     Dates: start: 20211116
  19. LEUCOVORIN [Suspect]
     Active Substance: LEUCOVORIN\LEUCOVORIN CALCIUM
     Dosage: 720 MILLIGRAM
     Route: 065
     Dates: start: 20211130
  20. FLUOROURACIL [Suspect]
     Active Substance: FLUOROURACIL
     Indication: Colorectal cancer metastatic
     Dosage: 892 MILLIGRAM
     Route: 040
     Dates: start: 20201202
  21. FLUOROURACIL [Suspect]
     Active Substance: FLUOROURACIL
     Dosage: 900 MILLIGRAM
     Route: 040
     Dates: start: 20210119
  22. FLUOROURACIL [Suspect]
     Active Substance: FLUOROURACIL
     Dosage: 720 MILLIGRAM
     Route: 040
     Dates: start: 20210202
  23. FLUOROURACIL [Suspect]
     Active Substance: FLUOROURACIL
     Dosage: 750 MILLIGRAM
     Route: 040
     Dates: start: 20210512
  24. FLUOROURACIL [Suspect]
     Active Substance: FLUOROURACIL
     Dosage: 725 MILLIGRAM
     Route: 040
     Dates: start: 20210526
  25. FLUOROURACIL [Suspect]
     Active Substance: FLUOROURACIL
     Dosage: 717 MILLIGRAM
     Route: 040
     Dates: start: 20210623
  26. FLUOROURACIL [Suspect]
     Active Substance: FLUOROURACIL
     Dosage: 713 MILLIGRAM
     Route: 040
     Dates: start: 20210707
  27. FLUOROURACIL [Suspect]
     Active Substance: FLUOROURACIL
     Dosage: 720 MILLIGRAM
     Route: 040
     Dates: start: 20210728
  28. FLUOROURACIL [Suspect]
     Active Substance: FLUOROURACIL
     Dosage: 730 MILLIGRAM
     Route: 040
     Dates: start: 20211116
  29. FLUOROURACIL [Suspect]
     Active Substance: FLUOROURACIL
     Dosage: 720 MILLIGRAM
     Route: 040
     Dates: start: 20211130
  30. FLUOROURACIL [Suspect]
     Active Substance: FLUOROURACIL
     Dosage: 5352 MILLIGRAM
     Route: 042
     Dates: start: 20201202
  31. FLUOROURACIL [Suspect]
     Active Substance: FLUOROURACIL
     Dosage: 5400 MILLIGRAM
     Route: 042
     Dates: start: 20210119
  32. FLUOROURACIL [Suspect]
     Active Substance: FLUOROURACIL
     Dosage: 2400 MILLIGRAM
     Route: 042
     Dates: start: 20210202
  33. FLUOROURACIL [Suspect]
     Active Substance: FLUOROURACIL
     Dosage: 4320 MILLIGRAM
     Route: 042
     Dates: start: 20210216
  34. FLUOROURACIL [Suspect]
     Active Substance: FLUOROURACIL
     Dosage: 4500 MILLIGRAM
     Route: 042
     Dates: start: 20210512
  35. FLUOROURACIL [Suspect]
     Active Substance: FLUOROURACIL
     Dosage: 4340 MILLIGRAM
     Route: 042
     Dates: start: 20210526
  36. FLUOROURACIL [Suspect]
     Active Substance: FLUOROURACIL
     Dosage: 4300 MILLIGRAM
     Route: 042
     Dates: start: 20210623
  37. FLUOROURACIL [Suspect]
     Active Substance: FLUOROURACIL
     Dosage: 4300 MILLIGRAM
     Route: 042
     Dates: start: 20210728
  38. FLUOROURACIL [Suspect]
     Active Substance: FLUOROURACIL
     Dosage: 4281 MILLIGRAM
     Route: 042
     Dates: start: 20210707
  39. FLUOROURACIL [Suspect]
     Active Substance: FLUOROURACIL
     Dosage: 4320 MILLIGRAM
     Route: 042
     Dates: start: 20210728
  40. FLUOROURACIL [Suspect]
     Active Substance: FLUOROURACIL
     Dosage: 4340 MILLIGRAM
     Route: 042
     Dates: start: 20211006
  41. FLUOROURACIL [Suspect]
     Active Substance: FLUOROURACIL
     Dosage: 4400 MILLIGRAM
     Route: 042
     Dates: start: 20211020
  42. FLUOROURACIL [Suspect]
     Active Substance: FLUOROURACIL
     Dosage: 4300 MILLIGRAM
     Route: 042
     Dates: start: 20211103
  43. FLUOROURACIL [Suspect]
     Active Substance: FLUOROURACIL
     Dosage: 4350 MILLIGRAM
     Route: 042
     Dates: start: 20211116
  44. FLUOROURACIL [Suspect]
     Active Substance: FLUOROURACIL
     Dosage: 4300 MILLIGRAM
     Route: 042
     Dates: start: 20211130
  45. IRINOTECAN [Suspect]
     Active Substance: IRINOTECAN
     Indication: Colorectal cancer metastatic
     Dosage: 400 MILLIGRAM
     Route: 065
     Dates: start: 20201202
  46. IRINOTECAN [Suspect]
     Active Substance: IRINOTECAN
     Dosage: 405 MILLIGRAM
     Route: 065
     Dates: start: 20210119
  47. IRINOTECAN [Suspect]
     Active Substance: IRINOTECAN
     Dosage: 324 MILLIGRAM
     Route: 065
     Dates: start: 20210202
  48. IRINOTECAN [Suspect]
     Active Substance: IRINOTECAN
     Dosage: 350 MILLIGRAM
     Route: 065
     Dates: start: 20210512
  49. DOXYCYCLINE [Concomitant]
     Active Substance: DOXYCYCLINE
     Indication: Drug eruption
     Dosage: 40 MILLIGRAM, QD
     Route: 048
     Dates: start: 20201228
  50. PREDNICARBATE [Concomitant]
     Active Substance: PREDNICARBATE
     Indication: Drug eruption
     Dosage: 2.5 MILLIGRAM, BID
     Route: 061
     Dates: start: 20201228
  51. METROCREME [Concomitant]
     Indication: Drug eruption
     Dosage: 7.5 MILLIGRAM, BID
     Route: 061
     Dates: start: 20201228
  52. EDOXABAN TOSYLATE [Concomitant]
     Active Substance: EDOXABAN TOSYLATE
     Indication: Anticoagulant therapy
     Dosage: 60 MILLIGRAM, QD
     Route: 048
     Dates: start: 20210721
  53. PANTOZOL [Concomitant]
     Active Substance: PANTOPRAZOLE SODIUM
     Indication: Prophylaxis
     Dosage: 40 MILLIGRAM, QD
     Route: 048
     Dates: start: 2018
  54. LEVOTHYROXINE SODIUM [Concomitant]
     Active Substance: LEVOTHYROXINE SODIUM
     Indication: Thyroid mass
     Dosage: 100 MICROGRAM, QD
     Route: 048
     Dates: start: 2016
  55. ELIQUIS [Concomitant]
     Active Substance: APIXABAN
     Indication: Thrombosis
     Dosage: 5 MILLIGRAM, BID
     Route: 048
     Dates: start: 20201215, end: 20210625
  56. RAMIPRIL [Concomitant]
     Active Substance: RAMIPRIL
     Indication: Hypertension
     Dosage: 5 MILLIGRAM, QD
     Route: 048
     Dates: start: 2016
  57. GABAPENTIN [Concomitant]
     Active Substance: GABAPENTIN
     Indication: Polyneuropathy
     Dosage: 100 MILLIGRAM, TID
     Route: 048
     Dates: start: 202005
  58. .ALPHA.-LIPOIC ACID [Concomitant]
     Active Substance: .ALPHA.-LIPOIC ACID
     Indication: Polyneuropathy
     Dosage: 600 MILLIGRAM, QD
     Dates: start: 20210205
  59. DERMATOP [Concomitant]
     Active Substance: PREDNICARBATE
     Dosage: 1 APPLICATION BID
     Route: 061
     Dates: start: 20201228

REACTIONS (1)
  - Rash [Recovered/Resolved]

NARRATIVE: CASE EVENT DATE: 20211208
